FAERS Safety Report 7772301-0 (Version None)
Quarter: 2011Q3

REPORT INFORMATION
  Report Type: 
  Country: None (occurrence: None)
  Receive Date: 20110922
  Receipt Date: 20100930
  Transmission Date: 20111222
  Serious: Yes (Hospitalization)
  Sender: FDA-Public Use
  Company Number: US-ASTRAZENECA-2010SE46406

PATIENT
  Age: 30 Year
  Sex: Male

DRUGS (3)
  1. LUNESTA [Concomitant]
  2. VICODAN [Concomitant]
  3. SEROQUEL [Suspect]
     Route: 048
     Dates: start: 20100901

REACTIONS (1)
  - TARDIVE DYSKINESIA [None]
